FAERS Safety Report 8814645 (Version 2)
Quarter: 2012Q4

REPORT INFORMATION
  Report Type: 
  Country: US (occurrence: US)
  Receive Date: 20120928
  Receipt Date: 20121010
  Transmission Date: 20130627
  Serious: No
  Sender: FDA-Public Use
  Company Number: US-VERTEX PHARMACEUTICAL INC.-2012-021621

PATIENT
  Age: 56 None
  Sex: Male

DRUGS (4)
  1. VX-950 [Suspect]
     Indication: HEPATITIS C
     Dosage: 750 mg, tid
     Route: 048
     Dates: start: 20120914, end: 20120924
  2. RIBASPHERE [Concomitant]
     Indication: HEPATITIS C
     Dosage: 600 mg, bid
     Route: 048
     Dates: start: 20120914, end: 20120924
  3. PEGASYS [Concomitant]
     Indication: HEPATITIS C
     Dosage: 180 ?g,weekly
     Route: 058
     Dates: start: 20120914, end: 20120924
  4. DIOVAN COMP [Concomitant]
     Indication: HYPERTENSION
     Dosage: 160/12.5 mg
     Route: 048

REACTIONS (7)
  - Cardiac flutter [Unknown]
  - Dyspnoea [Unknown]
  - Decreased appetite [Not Recovered/Not Resolved]
  - Headache [Unknown]
  - Nausea [Recovered/Resolved]
  - Vomiting [Recovered/Resolved]
  - Anal pruritus [Unknown]
